FAERS Safety Report 10192013 (Version 1)
Quarter: 2014Q2

REPORT INFORMATION
  Report Type: Spontaneous
  Country: GB (occurrence: None)
  Receive Date: 20140521
  Receipt Date: 20140521
  Transmission Date: 20141212
  Serious: Yes (Other)
  Sender: FDA-Public Use
  Company Number: SYM-2014-20863

PATIENT
  Age: 51 Year
  Sex: Female

DRUGS (5)
  1. METRONIDAZOLE (METRONIDAZOLE) [Suspect]
     Indication: SIALOADENITIS
     Route: 048
     Dates: start: 20140415, end: 20140419
  2. AMOXICILLIN (AMOXICILLIN) [Concomitant]
  3. CITALOPRAM (CITALOPRAM) [Concomitant]
  4. DICLOFENAC DIETHYLAMINE (DICLOFENAC DIETHYLAMINE) [Concomitant]
  5. PARACETAMOL (PARACETAMOL) [Concomitant]

REACTIONS (2)
  - Oral discomfort [None]
  - Glossodynia [None]
